FAERS Safety Report 6980425-0 (Version None)
Quarter: 2010Q3

REPORT INFORMATION
  Report Type: 
  Country: None (occurrence: None)
  Receive Date: 20100914
  Receipt Date: 20100601
  Transmission Date: 20110219
  Serious: No
  Sender: FDA-Public Use
  Company Number: US-ABBOTT-10P-163-0649312-00

PATIENT
  Sex: Female
  Weight: 68.1 kg

DRUGS (6)
  1. DEPAKOTE [Suspect]
     Indication: EPILEPSY
     Dosage: 2-125MG CAPS TWICE DAILY
     Dates: start: 19870101, end: 20100501
  2. DEPAKOTE [Suspect]
     Dosage: 2-125MG CAP IN AM, 3-125MG CAP AT NIGHT
     Dates: start: 20100501
  3. ASTELIN [Concomitant]
     Indication: PRODUCT USED FOR UNKNOWN INDICATION
     Dosage: 2 SPRAYS TWICE A DAY
     Route: 045
  4. SINGULAIR [Concomitant]
     Indication: ASTHMA
     Dosage: EVERY MORNING
  5. THEOPHYLLINE [Concomitant]
     Indication: ASTHMA
     Dosage: 2-100MG TABS 3 TIMES A DAY
  6. HYDROCODONE [Concomitant]
     Indication: ARTHRITIS

REACTIONS (4)
  - ARTHRALGIA [None]
  - ERYTHEMA [None]
  - OEDEMA PERIPHERAL [None]
  - PRURITUS [None]
